FAERS Safety Report 4614960-7 (Version None)
Quarter: 2005Q1

REPORT INFORMATION
  Report Type: 
  Country: None (occurrence: None)
  Receive Date: 20050315
  Receipt Date: 20050228
  Transmission Date: 20050727
  Serious: Yes (Death)
  Sender: FDA-Public Use
  Company Number: 1750

PATIENT
  Age: 54 Year
  Sex: Female
  Weight: 58.9676 kg

DRUGS (2)
  1. AVINZA [Suspect]
     Indication: PAIN
     Dosage: 30 MG QD PO
     Route: 048
     Dates: start: 20040601
  2. AZITHROMYCIN [Concomitant]

REACTIONS (5)
  - CARDIAC FAILURE [None]
  - CARDIO-RESPIRATORY ARREST [None]
  - COMA [None]
  - FALL [None]
  - SUDDEN DEATH [None]
